FAERS Safety Report 5248293-5 (Version None)
Quarter: 2007Q1

REPORT INFORMATION
  Report Type: 
  Country: None (occurrence: None)
  Receive Date: 20070227
  Receipt Date: 20061206
  Transmission Date: 20070707
  Serious: No
  Sender: FDA-Public Use
  Company Number: US-BRISTOL-MYERS SQUIBB COMPANY-13616479

PATIENT
  Age: 68 Year
  Sex: Male
  Weight: 86 kg

DRUGS (4)
  1. GLUCOPHAGE [Suspect]
  2. BYETTA [Suspect]
     Indication: DIABETES MELLITUS NON-INSULIN-DEPENDENT
     Route: 058
     Dates: start: 20060729
  3. AMARYL [Concomitant]
     Dates: start: 19980101, end: 20060725
  4. ACTOS [Concomitant]
     Dates: start: 20020101, end: 20060725

REACTIONS (5)
  - BLOOD GLUCOSE INCREASED [None]
  - DRUG EFFECT DECREASED [None]
  - FLATULENCE [None]
  - INJECTION SITE PAIN [None]
  - WEIGHT DECREASED [None]
